FAERS Safety Report 9849543 (Version 2)
Quarter: 2014Q1

REPORT INFORMATION
  Report Type: Report from Study
  Country: JP (occurrence: JP)
  Receive Date: 20140128
  Receipt Date: 20140311
  Transmission Date: 20141002
  Serious: Yes (Hospitalization)
  Sender: FDA-Public Use
  Company Number: JP-SA-2014SA008663

PATIENT
  Age: 40 Year
  Sex: Female
  Weight: 60 kg

DRUGS (13)
  1. THYMOGLOBULINE [Suspect]
     Indication: APLASTIC ANAEMIA
     Route: 042
     Dates: start: 20130304, end: 20130308
  2. NEORAL [Suspect]
     Indication: APLASTIC ANAEMIA
     Route: 065
     Dates: start: 20130304
  3. PREDONINE [Suspect]
     Indication: APLASTIC ANAEMIA
     Route: 065
     Dates: start: 20130304
  4. VENA [Concomitant]
     Indication: PROPHYLAXIS
     Route: 048
     Dates: start: 20130304, end: 20130307
  5. CALCIUM LACTATE [Concomitant]
     Indication: OSTEOPOROSIS PROPHYLAXIS
     Route: 048
     Dates: start: 20130304
  6. EDIROL [Concomitant]
     Indication: OSTEOPOROSIS PROPHYLAXIS
     Dates: start: 20130304
  7. BAKTAR [Concomitant]
     Indication: INFECTION PROPHYLAXIS
     Dates: start: 20130304
  8. TAKEPRON [Concomitant]
     Indication: PROPHYLAXIS AGAINST GASTROINTESTINAL ULCER
     Dates: start: 20130304
  9. CALONAL [Concomitant]
     Indication: HEADACHE
     Dates: start: 20130304, end: 20130513
  10. NEUTROGIN [Concomitant]
     Indication: APLASTIC ANAEMIA
     Dates: start: 20130304, end: 20130311
  11. PLATELETS, HUMAN BLOOD [Concomitant]
     Indication: APLASTIC ANAEMIA
     Dates: start: 20130225, end: 20131017
  12. RED BLOOD CELLS [Concomitant]
     Indication: APLASTIC ANAEMIA
     Dates: start: 20130225, end: 20131030
  13. RED BLOOD CELLS [Concomitant]
     Indication: APLASTIC ANAEMIA
     Dates: start: 20140108, end: 20140108

REACTIONS (1)
  - Febrile neutropenia [Recovered/Resolved]
